FAERS Safety Report 8816277 (Version 1)
Quarter: 2012Q4

REPORT INFORMATION
  Report Type: Spontaneous
  Country: US (occurrence: None)
  Receive Date: 20120928
  Receipt Date: 20120928
  Transmission Date: 20130627
  Serious: Yes (Life-Threatening, Hospitalization)
  Sender: FDA-Public Use
  Company Number: None

PATIENT
  Age: 62 Year
  Weight: 109.32 kg

DRUGS (5)
  1. FLECAINIDE [Suspect]
     Dosage: 150 m x 2 day 2 x day oral
     Route: 048
  2. FLECAINIDE [Suspect]
     Dosage: 100 ml + 75 ml 2 x day oral
     Route: 048
  3. FLECAINIDE [Suspect]
     Route: 048
  4. PROPAPHANONE [Concomitant]
  5. MULTOQ [Concomitant]

REACTIONS (14)
  - Alopecia [None]
  - Panic attack [None]
  - Middle insomnia [None]
  - Mental disorder [None]
  - Confusional state [None]
  - Paranoia [None]
  - Mental impairment [None]
  - Impaired driving ability [None]
  - Dizziness [None]
  - Vision blurred [None]
  - Fear [None]
  - Feeling abnormal [None]
  - Depression [None]
  - Hypersomnia [None]
